FAERS Safety Report 7512386-X (Version None)
Quarter: 2011Q2

REPORT INFORMATION
  Report Type: 
  Country: None (occurrence: None)
  Receive Date: 20110531
  Receipt Date: 20110519
  Transmission Date: 20111010
  Serious: Yes (Hospitalization, Other)
  Sender: FDA-Public Use
  Company Number: US-ROCHE-760341

PATIENT
  Sex: Male
  Weight: 79.8 kg

DRUGS (1)
  1. ACCUTANE [Suspect]
     Indication: ACNE
     Route: 065
     Dates: start: 19970429, end: 19971001

REACTIONS (18)
  - EMOTIONAL DISTRESS [None]
  - COLONIC FISTULA [None]
  - JOINT SWELLING [None]
  - VISION BLURRED [None]
  - PELVIC ABSCESS [None]
  - CROHN'S DISEASE [None]
  - NIGHT BLINDNESS [None]
  - SUICIDAL IDEATION [None]
  - HAEMORRHOIDS [None]
  - INSOMNIA [None]
  - HEPATOSPLENOMEGALY [None]
  - ALCOHOLISM [None]
  - HYPERVENTILATION [None]
  - MICTURITION URGENCY [None]
  - INTESTINAL OBSTRUCTION [None]
  - INFLAMMATORY BOWEL DISEASE [None]
  - DEPRESSION [None]
  - PARAESTHESIA [None]
